FAERS Safety Report 4995849-0 (Version None)
Quarter: 2006Q2

REPORT INFORMATION
  Report Type: 
  Country: None (occurrence: None)
  Receive Date: 20060504
  Receipt Date: 20060421
  Transmission Date: 20061013
  Serious: Yes (Hospitalization)
  Sender: FDA-Public Use
  Company Number: 02100-JPN-06-0176

PATIENT
  Age: 82 Year
  Sex: Female

DRUGS (5)
  1. CILOSTAZOL [Suspect]
     Indication: CEREBRAL INFARCTION
     Dosage: ONE OF 200 MG OR 75 MG ORAL
     Route: 048
     Dates: start: 20060123, end: 20060421
  2. ASPIRIN [Concomitant]
  3. CILNIDIPINE [Concomitant]
  4. ACECLOFENAC [Concomitant]
  5. CLOPIDOGREL [Suspect]

REACTIONS (4)
  - CEREBRAL ARTERY STENOSIS [None]
  - DISEASE PROGRESSION [None]
  - DISEASE RECURRENCE [None]
  - ISCHAEMIC STROKE [None]
